FAERS Safety Report 6337659-8 (Version None)
Quarter: 2009Q3

REPORT INFORMATION
  Report Type: 
  Country: None (occurrence: None)
  Receive Date: 20090902
  Receipt Date: 20090824
  Transmission Date: 20100115
  Serious: Yes (Hospitalization)
  Sender: FDA-Public Use
  Company Number: US-ELI_LILLY_AND_COMPANY-US200908005398

PATIENT
  Age: 50 Year
  Sex: Male

DRUGS (1)
  1. FORTEO [Suspect]
     Dosage: 20 UG, UNK

REACTIONS (2)
  - HOSPITALISATION [None]
  - MUSCLE SPASMS [None]
